FAERS Safety Report 5311017-7 (Version None)
Quarter: 2007Q2

REPORT INFORMATION
  Report Type: 
  Country: None (occurrence: None)
  Receive Date: 20070430
  Receipt Date: 20070417
  Transmission Date: 20071010
  Serious: Yes (Hospitalization)
  Sender: FDA-Public Use
  Company Number: JP-JNJFOC-20070405113

PATIENT
  Age: 64 Year
  Sex: Female

DRUGS (5)
  1. LEVOFLOXACIN [Suspect]
     Indication: DRUG USE FOR UNKNOWN INDICATION
     Route: 048
  2. CEFZON [Concomitant]
     Route: 065
  3. SURGAM [Concomitant]
     Route: 065
  4. TRANSAMIN [Concomitant]
     Route: 065
  5. LEBENIN [Concomitant]
     Route: 065

REACTIONS (1)
  - SHOCK [None]
